FAERS Safety Report 7546851-6 (Version None)
Quarter: 2011Q2

REPORT INFORMATION
  Report Type: 
  Country: None (occurrence: None)
  Receive Date: 20110614
  Receipt Date: 20110608
  Transmission Date: 20111010
  Serious: Yes (Other)
  Sender: FDA-Public Use
  Company Number: JP-PFIZER INC-2011125280

PATIENT
  Sex: Female

DRUGS (1)
  1. ZITHROMAX [Suspect]
     Dosage: UNK
     Dates: start: 20110607, end: 20110607

REACTIONS (5)
  - CHILLS [None]
  - VOMITING [None]
  - DIARRHOEA [None]
  - HAEMATOCHEZIA [None]
  - HYPOAESTHESIA [None]
